FAERS Safety Report 6604816-2 (Version None)
Quarter: 2010Q1

REPORT INFORMATION
  Report Type: 
  Country: None (occurrence: None)
  Receive Date: 20100226
  Receipt Date: 20100222
  Transmission Date: 20100710
  Serious: Yes (Death, Hospitalization)
  Sender: FDA-Public Use
  Company Number: GB-ROCHE-687071

PATIENT
  Sex: Female

DRUGS (3)
  1. XELODA [Suspect]
     Indication: GASTRIC CANCER
     Route: 065
  2. EPIRUBICIN [Concomitant]
     Indication: GASTRIC CANCER
  3. CISPLATIN [Concomitant]
     Indication: GASTRIC CANCER

REACTIONS (3)
  - DIARRHOEA [None]
  - GASTROINTESTINAL NECROSIS [None]
  - STOMATITIS [None]
